FAERS Safety Report 5825608-8 (Version None)
Quarter: 2008Q3

REPORT INFORMATION
  Report Type: 
  Country: None (occurrence: None)
  Receive Date: 20080729
  Receipt Date: 20080729
  Transmission Date: 20090109
  Serious: Yes (Death)
  Sender: FDA-Public Use
  Company Number: A0739829A

PATIENT
  Age: 18 Year
  Sex: Female

DRUGS (1)
  1. PAXIL [Suspect]
     Indication: ANXIETY
     Route: 048

REACTIONS (10)
  - ABNORMAL BEHAVIOUR [None]
  - ALCOHOL ABUSE [None]
  - APATHY [None]
  - ASTHENIA [None]
  - COMPLETED SUICIDE [None]
  - DRUG ABUSE [None]
  - FATIGUE [None]
  - INSOMNIA [None]
  - MEDICATION ERROR [None]
  - NIGHTMARE [None]
